FAERS Safety Report 15906209 (Version 2)
Quarter: 2019Q1

REPORT INFORMATION
  Report Type: Spontaneous
  Country: GB (occurrence: AU)
  Receive Date: 20190204
  Receipt Date: 20190220
  Transmission Date: 20190417
  Serious: Yes (Death, Other)
  Sender: FDA-Public Use
  Company Number: GB-PFIZER INC-2019043282

PATIENT
  Age: 35 Year

DRUGS (6)
  1. BRUFEN [Suspect]
     Active Substance: IBUPROFEN
     Dosage: UNK
     Route: 065
  2. METHYLAMPHETAMINE [Suspect]
     Active Substance: METHAMPHETAMINE
     Dosage: UNK
     Route: 065
  3. IBUPROFEN. [Suspect]
     Active Substance: IBUPROFEN
     Dosage: UNK
     Route: 065
  4. PARACETAMOL [Suspect]
     Active Substance: ACETAMINOPHEN
     Dosage: UNK
     Route: 065
  5. CODEINE [Suspect]
     Active Substance: CODEINE
     Dosage: UNK
     Route: 065
  6. METHADONE [Suspect]
     Active Substance: METHADONE HYDROCHLORIDE
     Dosage: MAINTENANCE PHASE
     Route: 065

REACTIONS (5)
  - Accidental overdose [Fatal]
  - Accidental poisoning [Fatal]
  - Overdose [Fatal]
  - Toxicity to various agents [Fatal]
  - Arrhythmia [Fatal]
